FAERS Safety Report 7910020-8 (Version None)
Quarter: 2011Q4

REPORT INFORMATION
  Report Type: 
  Country: None (occurrence: None)
  Receive Date: 20111111
  Receipt Date: 20111103
  Transmission Date: 20120403
  Serious: Yes (Death, Life-Threatening, Other)
  Sender: FDA-Public Use
  Company Number: CA-ROCHE-1004662

PATIENT
  Sex: Female
  Weight: 79 kg

DRUGS (7)
  1. APO-NADOL [Concomitant]
  2. MORPHINE [Concomitant]
  3. NEXIUM [Concomitant]
  4. ACTEMRA [Suspect]
     Indication: RHEUMATOID ARTHRITIS
     Route: 042
     Dates: start: 20110714, end: 20110908
  5. ACTONEL [Concomitant]
  6. PREDNISONE TAB [Concomitant]
     Indication: RHEUMATOID ARTHRITIS
     Route: 048
  7. EFFEXOR [Concomitant]

REACTIONS (12)
  - THROMBOCYTOPENIA [None]
  - OEDEMA PERIPHERAL [None]
  - CARDIAC FAILURE CONGESTIVE [None]
  - THROMBOSIS [None]
  - HEPATIC ENCEPHALOPATHY [None]
  - ACUTE HEPATIC FAILURE [None]
  - HAEMATEMESIS [None]
  - BACTERAEMIA [None]
  - MYOCARDIAL INFARCTION [None]
  - SPLENOMEGALY [None]
  - SEPSIS [None]
  - GASTROINTESTINAL HAEMORRHAGE [None]
